FAERS Safety Report 23374824 (Version 1)
Quarter: 2024Q1

REPORT INFORMATION
  Report Type: Spontaneous
  Country: DK (occurrence: DK)
  Receive Date: 20240106
  Receipt Date: 20240106
  Transmission Date: 20240410
  Serious: Yes (Other)
  Sender: FDA-Public Use
  Company Number: DK-SANDOZ-SDZ2024DK000954

PATIENT
  Sex: Female

DRUGS (2)
  1. VIVELLE-DOT [Suspect]
     Active Substance: ESTRADIOL
     Indication: Menopausal symptoms
     Dosage: 100 UG, QD
     Route: 065
     Dates: start: 202308, end: 202312
  2. VIVELLE-DOT [Suspect]
     Active Substance: ESTRADIOL
     Indication: Discomfort

REACTIONS (2)
  - Drug dependence [Unknown]
  - Product availability issue [Unknown]
